FAERS Safety Report 6522242-1 (Version None)
Quarter: 2009Q4

REPORT INFORMATION
  Report Type: 
  Country: None (occurrence: None)
  Receive Date: 20091230
  Receipt Date: 20071218
  Transmission Date: 20100525
  Serious: Yes (Death, Life-Threatening, Hospitalization)
  Sender: FDA-Public Use
  Company Number: PHHO2007DE19119

PATIENT
  Sex: Male

DRUGS (3)
  1. NEORAL [Suspect]
     Indication: LIVER TRANSPLANT
     Route: 048
     Dates: start: 20071110
  2. NO TREATMENT RECEIVED NOMED [Suspect]
     Dosage: NO TREATMENT
  3. SIMULECT [Concomitant]
     Indication: LIVER TRANSPLANT
     Dosage: ONCE/SINGLE
     Route: 042
     Dates: start: 20071109, end: 20071109

REACTIONS (2)
  - HEPATECTOMY [None]
  - LIVER GRAFT LOSS [None]
